FAERS Safety Report 14331703 (Version 1)
Quarter: 2017Q4

REPORT INFORMATION
  Report Type: Report from Study
  Country: FR (occurrence: FR)
  Receive Date: 20171228
  Receipt Date: 20171228
  Transmission Date: 20180321
  Serious: Yes (Other)
  Sender: FDA-Public Use
  Company Number: FR-ASTELLAS-2017US055179

PATIENT
  Age: 68 Year
  Sex: Female

DRUGS (2)
  1. ERLOTINIB [Suspect]
     Active Substance: ERLOTINIB
     Indication: NON-SMALL CELL LUNG CANCER
     Dosage: UNK UNK, UNKNOWN FREQ.
     Route: 065
     Dates: start: 20141113
  2. ERLOTINIB [Suspect]
     Active Substance: ERLOTINIB
     Dosage: UNK UNK, UNKNOWN FREQ.
     Route: 065
     Dates: start: 20160218

REACTIONS (13)
  - Eye discharge [Unknown]
  - Asthenia [Unknown]
  - Lip dry [Unknown]
  - Headache [Unknown]
  - Erythema [Unknown]
  - Dry skin [Unknown]
  - Diarrhoea [Unknown]
  - Vomiting [Unknown]
  - Mouth ulceration [Unknown]
  - Weight decreased [Unknown]
  - Fall [Unknown]
  - Onychoclasis [Unknown]
  - Vertigo [Unknown]

NARRATIVE: CASE EVENT DATE: 20160323
